FAERS Safety Report 8160441-6 (Version None)
Quarter: 2012Q1

REPORT INFORMATION
  Report Type: 
  Country: None (occurrence: None)
  Receive Date: 20120223
  Receipt Date: 20120214
  Transmission Date: 20120608
  Serious: No
  Sender: FDA-Public Use
  Company Number: US-BAYER-2012-016224

PATIENT
  Age: 7 Month
  Sex: Female
  Weight: 8 kg

DRUGS (1)
  1. ALEVE (CAPLET) [Suspect]
     Dosage: 1 TABLET USED ONLY ONCE
     Route: 048
     Dates: start: 20120214

REACTIONS (1)
  - NO ADVERSE EVENT [None]
